FAERS Safety Report 7221839-3 (Version None)
Quarter: 2011Q1

REPORT INFORMATION
  Report Type: 
  Country: None (occurrence: None)
  Receive Date: 20110112
  Receipt Date: 20110107
  Transmission Date: 20110831
  Serious: Yes (Hospitalization)
  Sender: FDA-Public Use
  Company Number: A0904100A

PATIENT
  Age: 57 Year
  Sex: Female

DRUGS (2)
  1. FLONASE [Suspect]
     Dosage: 1SPR SINGLE DOSE
     Route: 045
     Dates: start: 20080201
  2. NO CONCURRENT MEDICATION [Concomitant]

REACTIONS (5)
  - DIARRHOEA [None]
  - RETCHING [None]
  - CEREBROVASCULAR ACCIDENT [None]
  - CATARACT [None]
  - ASTHENIA [None]
